FAERS Safety Report 25034905 (Version 1)
Quarter: 2025Q1

REPORT INFORMATION
  Report Type: Report from Study
  Country: GB (occurrence: GB)
  Receive Date: 20250304
  Receipt Date: 20250304
  Transmission Date: 20250409
  Serious: Yes (Death, Other)
  Sender: GILEAD
  Company Number: GB-GILEAD-2025-0705945

PATIENT
  Sex: Female

DRUGS (1)
  1. LEDIPASVIR\SOFOSBUVIR [Suspect]
     Active Substance: LEDIPASVIR\SOFOSBUVIR
     Indication: Product used for unknown indication
     Dosage: 1 DOSAGE FORM, QD (90MG/400 MG)
     Route: 065

REACTIONS (1)
  - Death [Fatal]
